FAERS Safety Report 17637434 (Version 1)
Quarter: 2020Q2

REPORT INFORMATION
  Report Type: Spontaneous
  Country: DE (occurrence: DE)
  Receive Date: 20200407
  Receipt Date: 20200407
  Transmission Date: 20200713
  Serious: Yes (Life-Threatening, Hospitalization)
  Sender: FDA-Public Use
  Company Number: DE-PFIZER INC-2020138837

PATIENT
  Age: 40 Year
  Sex: Female

DRUGS (2)
  1. MIFEGYNE [Suspect]
     Active Substance: MIFEPRISTONE
     Indication: ECTOPIC PREGNANCY TERMINATION
     Route: 065
     Dates: start: 2016, end: 2016
  2. CYTOTEC [Suspect]
     Active Substance: MISOPROSTOL
     Indication: ECTOPIC PREGNANCY TERMINATION
     Route: 065
     Dates: start: 2016, end: 2016

REACTIONS (4)
  - Uterine haemorrhage [Recovered/Resolved with Sequelae]
  - Off label use [Unknown]
  - Maternal exposure during pregnancy [Unknown]
  - Drug ineffective for unapproved indication [Recovered/Resolved with Sequelae]

NARRATIVE: CASE EVENT DATE: 2016
